FAERS Safety Report 9868609 (Version 2)
Quarter: 2014Q1

REPORT INFORMATION
  Report Type: Report from Study
  Country: JP (occurrence: JP)
  Receive Date: 20140204
  Receipt Date: 20140224
  Transmission Date: 20141002
  Serious: Yes (Hospitalization)
  Sender: FDA-Public Use
  Company Number: JP-TAKEDA-2014TJP001076

PATIENT
  Age: 85 Year
  Sex: Male

DRUGS (8)
  1. PIOGLITAZONE, GLIMEPIRIDE [Suspect]
     Indication: TYPE 2 DIABETES MELLITUS
     Dosage: 1 DF, QD
     Route: 048
     Dates: start: 20120118, end: 20120502
  2. BASEN [Concomitant]
     Indication: TYPE 2 DIABETES MELLITUS
     Dosage: 0.6 MG, 1 DAYS
     Route: 048
     Dates: end: 20120502
  3. GLACTIV [Concomitant]
     Indication: TYPE 2 DIABETES MELLITUS
     Dosage: 50 MG, 1 DAYS
     Route: 048
     Dates: end: 20120502
  4. AMARYL [Concomitant]
     Indication: TYPE 2 DIABETES MELLITUS
     Dosage: 1 MG, QD
     Route: 048
     Dates: start: 20100721, end: 20120502
  5. ARICEPT [Concomitant]
     Dosage: UNK
     Route: 048
  6. EPADEL-S [Concomitant]
     Dosage: UNK
     Route: 048
  7. CHOTOSAN [Concomitant]
     Indication: HYPERTENSION
     Dosage: UNK
     Route: 048
  8. CHOTOSAN [Concomitant]
     Indication: HEADACHE

REACTIONS (2)
  - Bile duct obstruction [Not Recovered/Not Resolved]
  - Jaundice [Not Recovered/Not Resolved]
